FAERS Safety Report 6632131-X (Version None)
Quarter: 2010Q1

REPORT INFORMATION
  Report Type: 
  Country: None (occurrence: None)
  Receive Date: 20100312
  Receipt Date: 20100119
  Transmission Date: 20100710
  Serious: No
  Sender: FDA-Public Use
  Company Number: US-ABBOTT-10P-163-0620831-00

PATIENT
  Sex: Female

DRUGS (1)
  1. E-MYCIN [Suspect]
     Indication: UPPER RESPIRATORY TRACT INFECTION
     Dates: start: 19880101, end: 19880101

REACTIONS (1)
  - URTICARIA [None]
